FAERS Safety Report 12040251 (Version 2)
Quarter: 2016Q1

REPORT INFORMATION
  Report Type: Spontaneous
  Country: US (occurrence: US)
  Receive Date: 20160208
  Receipt Date: 20160220
  Transmission Date: 20160526
  Serious: Yes (Disabling)
  Sender: FDA-Public Use
  Company Number: US-AUROBINDO-AUR-APL-2016-00995

PATIENT
  Age: 55 Year
  Sex: Male

DRUGS (1)
  1. CYCLOBENZAPRINE 10 MG [Suspect]
     Active Substance: CYCLOBENZAPRINE
     Indication: MUSCLE SPASMS
     Dosage: 10 MG, DAILY
     Route: 065

REACTIONS (4)
  - Painful ejaculation [Recovered/Resolved]
  - Sexual dysfunction [Recovered/Resolved]
  - Activities of daily living impaired [Recovered/Resolved]
  - Semen volume decreased [Recovered/Resolved]
